FAERS Safety Report 6431221-4 (Version None)
Quarter: 2009Q4

REPORT INFORMATION
  Report Type: 
  Country: None (occurrence: None)
  Receive Date: 20091106
  Receipt Date: 20091029
  Transmission Date: 20100525
  Serious: Yes (Other)
  Sender: FDA-Public Use
  Company Number: US-ABBOTT-09P-163-0605907-02

PATIENT
  Sex: Female

DRUGS (26)
  1. HUMIRA [Suspect]
     Indication: CROHN'S DISEASE
     Route: 058
  2. COLECALCIFEROL [Concomitant]
     Indication: VITAMIN D DEFICIENCY
     Dates: start: 20071001
  3. CYANOCOBALAMIN [Concomitant]
     Indication: VITAMIN B12 DEFICIENCY
     Dosage: 1000 MCG/ML
     Dates: start: 20071001
  4. FOLIC ACID [Concomitant]
     Indication: VITAMIN SUPPLEMENTATION
     Dates: start: 20071001
  5. KLONOPIN [Concomitant]
     Indication: DRUG USE FOR UNKNOWN INDICATION
     Dates: start: 20071001, end: 20080129
  6. LAMICTAL [Concomitant]
     Indication: DRUG USE FOR UNKNOWN INDICATION
     Dates: start: 20071001
  7. PERCOCET [Concomitant]
     Indication: PAIN
     Dates: start: 20071201, end: 20080109
  8. PERCOCET [Concomitant]
     Dosage: 5/325 MG
     Dates: start: 20080317, end: 20080328
  9. REGLAN [Concomitant]
     Indication: DRUG USE FOR UNKNOWN INDICATION
     Dates: start: 20080317, end: 20080915
  10. ZOFRAN [Concomitant]
     Indication: NAUSEA
     Dates: start: 20080317, end: 20080405
  11. PROTONIX [Concomitant]
     Indication: GASTROOESOPHAGEAL REFLUX DISEASE
  12. ZOLPIDEM [Concomitant]
     Indication: INSOMNIA
     Dates: start: 20080109
  13. TRANEXAMIC ACID [Concomitant]
     Indication: DRUG USE FOR UNKNOWN INDICATION
     Dosage: PATCH
     Dates: start: 20080202, end: 20080328
  14. VICODIN [Concomitant]
     Indication: PAIN
     Dosage: 5/500 MG
     Dates: start: 20080202
  15. NEURONTIN [Concomitant]
     Indication: DRUG USE FOR UNKNOWN INDICATION
     Dates: start: 20080405, end: 20080429
  16. XANAX [Concomitant]
     Indication: ANXIETY
     Dates: start: 20080129
  17. SEROQUEL [Concomitant]
     Indication: INSOMNIA
     Dates: start: 20080202
  18. ZYRTEC [Concomitant]
     Indication: HYPERSENSITIVITY
     Dates: start: 20071205
  19. HYDROCORTISONE ENEMA [Concomitant]
     Indication: CROHN'S DISEASE
     Dosage: 100/60 MG/ML
     Route: 054
     Dates: start: 20080104, end: 20080104
  20. FLAGYL [Concomitant]
     Indication: ABDOMINAL DISTENSION
     Dates: start: 20071212, end: 20080328
  21. PURINETHOL [Concomitant]
     Indication: CROHN'S DISEASE
     Dates: start: 20080109, end: 20080328
  22. DARVOCET-N 100 [Concomitant]
     Indication: PAIN
     Dosage: 100/650 MG
     Dates: start: 20080110, end: 20080328
  23. PREDNISONE [Concomitant]
     Indication: CROHN'S DISEASE
     Dates: start: 20080129
  24. METHOTREXATE SODIUM [Concomitant]
     Indication: CROHN'S DISEASE
  25. SULFASALAZINE [Concomitant]
     Indication: CROHN'S DISEASE
     Dates: start: 20080915
  26. MERCAPTOPURINE [Concomitant]
     Indication: CROHN'S DISEASE
     Dates: end: 20071001

REACTIONS (1)
  - ILEUS [None]
